FAERS Safety Report 8612860-9 (Version None)
Quarter: 2012Q3

REPORT INFORMATION
  Report Type: 
  Country: None (occurrence: None)
  Receive Date: 20120822
  Receipt Date: 20110725
  Transmission Date: 20120928
  Serious: No
  Sender: FDA-Public Use
  Company Number: US-ASTRAZENECA-2011SE36583

PATIENT
  Sex: Male

DRUGS (2)
  1. SYMBICORT [Suspect]
     Dosage: 4 TIMES A DAY
     Route: 055
  2. SYMBICORT [Suspect]
     Indication: ASTHMA
     Dosage: THE PATIENT WAS PRESCRIBED 2 PUFFS 2 TIMES A DAY. HE USES IT AS 2 PUFFS ONCE A DAY OR EVERY 2-3 DAYS
     Route: 055

REACTIONS (2)
  - DYSPNOEA [None]
  - INCORRECT DOSE ADMINISTERED [None]
